FAERS Safety Report 18725690 (Version 2)
Quarter: 2021Q3

REPORT INFORMATION
  Report Type: Other
  Country: US (occurrence: US)
  Receive Date: 20210111
  Receipt Date: 20210710
  Transmission Date: 20211014
  Serious: Yes (Hospitalization)
  Sender: FDA-Public Use
  Company Number: US-ROCHE-2746606

PATIENT
  Age: 57 Year
  Sex: Female

DRUGS (1)
  1. OCREVUS [Suspect]
     Active Substance: OCRELIZUMAB
     Indication: MULTIPLE SCLEROSIS
     Dosage: DOT: 29/JUN/2017, 13/JUL/2017,  24/JAN/2018, 16/JUL/2018, 14/JAN/2019, 11/JUL/2019, 17/JAN/2020,15/
     Route: 065
     Dates: start: 20170627

REACTIONS (4)
  - Aplastic anaemia [Unknown]
  - Haemolytic anaemia [Recovered/Resolved]
  - Blood bilirubin increased [Unknown]
  - Red blood cell count increased [Unknown]

NARRATIVE: CASE EVENT DATE: 202012
